FAERS Safety Report 4409758-9 (Version None)
Quarter: 2004Q3

REPORT INFORMATION
  Report Type: 
  Country: None (occurrence: None)
  Receive Date: 20040727
  Receipt Date: 20040727
  Transmission Date: 20050211
  Serious: Yes (Life-Threatening, Hospitalization, Disabling)
  Sender: FDA-Public Use
  Company Number: None

PATIENT
  Age: 48 Year
  Sex: Male
  Weight: 82 kg

DRUGS (9)
  1. RISPERIDONE [Suspect]
     Indication: MAJOR DEPRESSION
     Dosage: 0.5MG  BID  ORAL
     Route: 048
     Dates: start: 19990427, end: 20040726
  2. TENOFAVIR [Concomitant]
  3. EPIVIR [Concomitant]
  4. KALETRA [Concomitant]
  5. FLEXERIL [Concomitant]
  6. RANITIDINE [Concomitant]
  7. ALBUTEROL [Concomitant]
  8. AEROBID [Concomitant]
  9. BECONASE [Concomitant]

REACTIONS (4)
  - APHASIA [None]
  - CEREBROVASCULAR ACCIDENT [None]
  - MENTAL STATUS CHANGES [None]
  - PNEUMONIA ASPIRATION [None]
